FAERS Safety Report 23688530 (Version 1)
Quarter: 2024Q1

REPORT INFORMATION
  Report Type: Spontaneous
  Country: AT (occurrence: AT)
  Receive Date: 20240329
  Receipt Date: 20240329
  Transmission Date: 20240410
  Serious: Yes (Other)
  Sender: FDA-Public Use
  Company Number: AT-TAKEDA-2024TUS029537

PATIENT
  Sex: Male

DRUGS (2)
  1. NINLARO [Suspect]
     Active Substance: IXAZOMIB CITRATE
     Indication: Angioimmunoblastic T-cell lymphoma
     Dosage: 4 MILLIGRAM
     Route: 065
     Dates: start: 20240223
  2. ROMIDEPSIN [Suspect]
     Active Substance: ROMIDEPSIN
     Indication: Angioimmunoblastic T-cell lymphoma
     Dosage: UNK
     Route: 065

REACTIONS (3)
  - Angioimmunoblastic T-cell lymphoma recurrent [Unknown]
  - Product use in unapproved indication [Unknown]
  - Product use issue [Unknown]
